FAERS Safety Report 8158870-X (Version None)
Quarter: 2012Q1

REPORT INFORMATION
  Report Type: 
  Country: None (occurrence: None)
  Receive Date: 20120223
  Receipt Date: 20120221
  Transmission Date: 20120608
  Serious: Yes (Life-Threatening, Hospitalization)
  Sender: FDA-Public Use
  Company Number: US-PFIZER INC-2012046065

PATIENT
  Sex: Female
  Weight: 51.701 kg

DRUGS (2)
  1. ALPRAZOLAM [Suspect]
     Indication: BIPOLAR DISORDER
     Dosage: 0.25 MG, 6X/DAY
     Route: 048
     Dates: start: 20120112, end: 20120114
  2. EFFEXOR XR [Concomitant]
     Indication: BIPOLAR DISORDER
     Dosage: 75 MG, 1X/DAY (37.5MG TWO CAPSULES AT BEDTIME)

REACTIONS (3)
  - CONVULSION [None]
  - APPARENT DEATH [None]
  - MALAISE [None]
